FAERS Safety Report 6347816-2 (Version None)
Quarter: 2009Q3

REPORT INFORMATION
  Report Type: 
  Country: None (occurrence: None)
  Receive Date: 20090910
  Receipt Date: 20090902
  Transmission Date: 20100115
  Serious: Yes (Other)
  Sender: FDA-Public Use
  Company Number: B0587676A

PATIENT
  Sex: Female
  Weight: 146 kg

DRUGS (13)
  1. TYKERB [Suspect]
     Indication: BREAST CANCER METASTATIC
     Dosage: 1250MG PER DAY
     Route: 048
     Dates: start: 20090728, end: 20090731
  2. CAPECITABINE [Concomitant]
     Route: 048
     Dates: start: 20090728, end: 20090731
  3. XELODA [Concomitant]
     Indication: BREAST CANCER METASTATIC
     Dosage: 1200MG PER DAY
     Route: 048
     Dates: start: 20090727, end: 20090731
  4. FLUITRAN [Concomitant]
     Dosage: 1MG PER DAY
     Route: 048
  5. DIOVAN [Concomitant]
     Dosage: 40MG PER DAY
     Route: 048
  6. NIFELANTERN CR [Concomitant]
     Dosage: 40MG PER DAY
     Route: 048
  7. MYSLEE [Concomitant]
     Dosage: 5MG PER DAY
     Route: 048
  8. LOBU [Concomitant]
     Dosage: 9U PER DAY
     Route: 048
  9. ARIMIDEX [Concomitant]
     Indication: BREAST CANCER METASTATIC
     Dosage: 1U PER DAY
     Route: 048
  10. SELBEX [Concomitant]
     Dosage: 150MG PER DAY
     Route: 048
  11. PARIET [Concomitant]
     Dosage: 10MG PER DAY
     Route: 048
  12. SENNARIDE [Concomitant]
     Dosage: 3U PER DAY
     Route: 048
  13. ZOMETA [Concomitant]
     Indication: BENIGN BONE NEOPLASM
     Dosage: 4MG PER DAY
     Route: 042
     Dates: start: 20090731, end: 20090731

REACTIONS (1)
  - INTERSTITIAL LUNG DISEASE [None]
